FAERS Safety Report 26162402 (Version 1)
Quarter: 2025Q4

REPORT INFORMATION
  Report Type: Other
  Country: GB (occurrence: GB)
  Receive Date: 20251216
  Receipt Date: 20251216
  Transmission Date: 20260117
  Serious: Yes (Hospitalization, Disabling, Other)
  Sender: Atnahs Healthcare
  Company Number: GB-ATNAHS-2025-PMNV-GB002051

PATIENT

DRUGS (1)
  1. NAPROSYN [Suspect]
     Active Substance: NAPROXEN
     Indication: Adverse drug reaction
     Dosage: UNK
     Route: 065
     Dates: start: 2024, end: 202509

REACTIONS (1)
  - Platelet dysfunction [Not Recovered/Not Resolved]

NARRATIVE: CASE EVENT DATE: 20250801
